FAERS Safety Report 7439741-0 (Version None)
Quarter: 2011Q2

REPORT INFORMATION
  Report Type: 
  Country: None (occurrence: None)
  Receive Date: 20110427
  Receipt Date: 20110421
  Transmission Date: 20111010
  Serious: Yes (Death)
  Sender: FDA-Public Use
  Company Number: PHHY2011US05585

PATIENT

DRUGS (2)
  1. EXFORGE [Suspect]
     Dosage: 10/320 MG
  2. FEMARA [Concomitant]
     Dosage: UNK

REACTIONS (1)
  - DEATH [None]
